FAERS Safety Report 6088083-7 (Version None)
Quarter: 2009Q1

REPORT INFORMATION
  Report Type: 
  Country: None (occurrence: None)
  Receive Date: 20090218
  Receipt Date: 20090211
  Transmission Date: 20090719
  Serious: Yes (Hospitalization)
  Sender: FDA-Public Use
  Company Number: POMP-1000491

PATIENT
  Age: 15 Month
  Sex: Male

DRUGS (4)
  1. MYOZYME [Suspect]
     Indication: GLYCOGEN STORAGE DISEASE TYPE II
     Dosage: 20 MG/KG, Q2W, INTRAVENOUS
     Route: 042
     Dates: start: 20071121
  2. SMECTA (GLUCOSE MONOHYDRATE) [Concomitant]
  3. ZYRTEC [Concomitant]
  4. SINGULAIR [Concomitant]

REACTIONS (19)
  - ATELECTASIS [None]
  - BACTERIA SPUTUM IDENTIFIED [None]
  - BLOOD IMMUNOGLOBULIN G INCREASED [None]
  - BREATH SOUNDS ABNORMAL [None]
  - COLLAPSE OF LUNG [None]
  - DYSPHONIA [None]
  - ESCHERICHIA INFECTION [None]
  - GENERAL PHYSICAL HEALTH DETERIORATION [None]
  - HYPERCAPNIA [None]
  - LUNG INFILTRATION [None]
  - MYCOPLASMA INFECTION [None]
  - NASAL FLARING [None]
  - PNEUMONIA MYCOPLASMAL [None]
  - PRODUCTIVE COUGH [None]
  - RALES [None]
  - RESPIRATORY FAILURE [None]
  - SPUTUM CULTURE POSITIVE [None]
  - SPUTUM RETENTION [None]
  - TACHYPNOEA [None]
